FAERS Safety Report 6434966-5 (Version None)
Quarter: 2009Q4

REPORT INFORMATION
  Report Type: 
  Country: None (occurrence: None)
  Receive Date: 20091109
  Receipt Date: 20091109
  Transmission Date: 20100525
  Serious: Yes (Other)
  Sender: FDA-Public Use
  Company Number: None

PATIENT
  Age: 16 Year
  Sex: Male
  Weight: 63.5036 kg

DRUGS (2)
  1. ACCUTANE [Suspect]
     Indication: ACNE
     Dosage: 20 MG 2X DAY PO
     Route: 048
     Dates: start: 20050220, end: 20050929
  2. ACCUTANE [Suspect]
     Indication: ACNE
     Dosage: 20 MG 2X DAY PO
     Route: 048
     Dates: start: 20051208, end: 20060617

REACTIONS (5)
  - BACK PAIN [None]
  - DRY EYE [None]
  - DRY MOUTH [None]
  - LIP DRY [None]
  - NECK PAIN [None]
